FAERS Safety Report 19085679 (Version 1)
Quarter: 2021Q2

REPORT INFORMATION
  Report Type: Spontaneous
  Country: US (occurrence: US)
  Receive Date: 20210401
  Receipt Date: 20210401
  Transmission Date: 20210717
  Serious: Yes (Death)
  Sender: FDA-Public Use
  Company Number: US-UNICHEM PHARMACEUTICALS (USA) INC-UCM202103-000279

PATIENT

DRUGS (2)
  1. SACUBITRIL [Suspect]
     Active Substance: SACUBITRIL
     Indication: FOETAL EXPOSURE DURING PREGNANCY
     Dosage: UNKNOWN
  2. VALSARTAN. [Suspect]
     Active Substance: VALSARTAN
     Indication: FOETAL EXPOSURE DURING PREGNANCY
     Dosage: UNKNOWN

REACTIONS (9)
  - Hypotension [Fatal]
  - Neonatal respiratory distress syndrome [Fatal]
  - Pneumothorax [Fatal]
  - Pulmonary hypertension [Fatal]
  - Hypocalvaria [Fatal]
  - Oliguria [Fatal]
  - Renal dysplasia [Fatal]
  - Renal impairment [Fatal]
  - Pulmonary hypoplasia [Fatal]
